FAERS Safety Report 4887669-2 (Version None)
Quarter: 2006Q1

REPORT INFORMATION
  Report Type: 
  Country: None (occurrence: None)
  Receive Date: 20060119
  Receipt Date: 20060119
  Transmission Date: 20060701
  Serious: Yes (Hospitalization)
  Sender: FDA-Public Use
  Company Number: None

PATIENT
  Age: 87 Year
  Sex: Male
  Weight: 51.4 kg

DRUGS (1)
  1. DIATRIZOATE ORAL SOLN 37% [Suspect]
     Indication: COMPUTERISED TOMOGRAM
     Dosage: PO
     Route: 048
     Dates: start: 20051205, end: 20051205

REACTIONS (5)
  - ASPIRATION [None]
  - LOCAL REACTION [None]
  - LUNG INFILTRATION [None]
  - PNEUMONIA ASPIRATION [None]
  - POST PROCEDURAL COMPLICATION [None]
